FAERS Safety Report 23619397 (Version 1)
Quarter: 2024Q1

REPORT INFORMATION
  Report Type: Spontaneous
  Country: US (occurrence: US)
  Receive Date: 20240311
  Receipt Date: 20240311
  Transmission Date: 20240410
  Serious: No
  Sender: FDA-Public Use
  Company Number: US-BAUSCHBL-2024BNL002772

PATIENT
  Sex: Female

DRUGS (1)
  1. LACRISERT [Suspect]
     Active Substance: HYDROXYPROPYL CELLULOSE
     Indication: Product used for unknown indication
     Route: 047
     Dates: start: 1984

REACTIONS (3)
  - Pain [Unknown]
  - Discomfort [Unknown]
  - Product availability issue [Unknown]
